FAERS Safety Report 6178300-7 (Version None)
Quarter: 2009Q2

REPORT INFORMATION
  Report Type: 
  Country: None (occurrence: None)
  Receive Date: 20090504
  Receipt Date: 20090428
  Transmission Date: 20091009
  Serious: Yes (Hospitalization)
  Sender: FDA-Public Use
  Company Number: GB-SP-2009-01594

PATIENT
  Age: 77 Year
  Sex: Male

DRUGS (17)
  1. IMMUCYST [Suspect]
     Indication: BLADDER CANCER
     Route: 043
     Dates: start: 20090129, end: 20090212
  2. IMMUCYST [Suspect]
     Route: 043
     Dates: start: 20090129, end: 20090212
  3. IMMUCYST [Suspect]
     Route: 043
     Dates: start: 20090129, end: 20090212
  4. LEVOTHYROXINE SODIUM [Concomitant]
     Route: 048
  5. FYBOGEL [Concomitant]
     Dosage: NIGHTLY PRN
     Route: 048
  6. TIOTROPIUM [Concomitant]
     Route: 050
  7. AMIODARONE [Concomitant]
     Route: 048
  8. ASPIRIN [Concomitant]
     Route: 048
  9. FUROSEMIDE [Concomitant]
     Route: 048
  10. LANSOPRAZOLE [Concomitant]
     Route: 048
  11. VALSARTAN [Concomitant]
     Route: 048
  12. SIMVASTATIN [Concomitant]
     Route: 048
  13. WARFARIN [Concomitant]
     Route: 048
  14. ALENDRONATE SODIUM [Concomitant]
     Dosage: 70 MG WEEKLY
     Route: 048
  15. TAMSULOSIN HCL [Concomitant]
     Route: 048
  16. SERETIDE 250 ACCUHALER [Concomitant]
     Dosage: TWICE DAILY
     Route: 050
  17. NICORANDIL [Concomitant]
     Route: 048

REACTIONS (10)
  - BOVINE TUBERCULOSIS [None]
  - CHILLS [None]
  - DEHYDRATION [None]
  - DEPRESSED LEVEL OF CONSCIOUSNESS [None]
  - DYSPNOEA [None]
  - HAEMATURIA [None]
  - HYPOTENSION [None]
  - MALAISE [None]
  - PYREXIA [None]
  - URINARY TRACT INFECTION [None]
